FAERS Safety Report 10648808 (Version 2)
Quarter: 2015Q1

REPORT INFORMATION
  Report Type: Spontaneous
  Country: NL (occurrence: NL)
  Receive Date: 20141212
  Receipt Date: 20150105
  Transmission Date: 20150720
  Serious: Yes (Other)
  Sender: FDA-Public Use
  Company Number: PHHY2014NL157570

PATIENT
  Sex: Male

DRUGS (1)
  1. GLIVEC [Suspect]
     Active Substance: IMATINIB MESYLATE
     Indication: GASTROINTESTINAL STROMAL TUMOUR
     Dosage: 400 MG, BID
     Route: 048
     Dates: start: 20060201

REACTIONS (10)
  - Hernia [Recovering/Resolving]
  - Arthropathy [Unknown]
  - Gait disturbance [Unknown]
  - Dry eye [Unknown]
  - Back pain [Recovering/Resolving]
  - Nephrolithiasis [Unknown]
  - Osteoarthritis [Recovering/Resolving]
  - Arthralgia [Recovering/Resolving]
  - Fall [Unknown]
  - Bone pain [Recovering/Resolving]

NARRATIVE: CASE EVENT DATE: 20140801
